FAERS Safety Report 11113110 (Version 2)
Quarter: 2015Q2

REPORT INFORMATION
  Report Type: Spontaneous
  Country: KR (occurrence: KR)
  Receive Date: 20150514
  Receipt Date: 20150521
  Transmission Date: 20150821
  Serious: Yes (Death, Other)
  Sender: FDA-Public Use
  Company Number: KR-PFIZER INC-2015160287

PATIENT
  Age: 71 Year
  Sex: Male

DRUGS (6)
  1. IMMUNOGLOBULIN /00025201/ [Suspect]
     Active Substance: HUMAN IMMUNOGLOBULIN G
     Indication: PNEUMONIA STREPTOCOCCAL
     Dosage: 25 G, UNK
     Route: 042
  2. PENICILLIN G /00000901/ [Suspect]
     Active Substance: PENICILLIN G
     Indication: TOXIC SHOCK SYNDROME STREPTOCOCCAL
  3. CLINDAMYCIN PHOSPHATE. [Suspect]
     Active Substance: CLINDAMYCIN PHOSPHATE
     Indication: TOXIC SHOCK SYNDROME STREPTOCOCCAL
  4. PENICILLIN G /00000901/ [Suspect]
     Active Substance: PENICILLIN G
     Indication: PNEUMONIA STREPTOCOCCAL
     Dosage: UNK
  5. IMMUNOGLOBULIN /00025201/ [Suspect]
     Active Substance: HUMAN IMMUNOGLOBULIN G
     Indication: TOXIC SHOCK SYNDROME STREPTOCOCCAL
  6. CLINDAMYCIN PHOSPHATE. [Suspect]
     Active Substance: CLINDAMYCIN PHOSPHATE
     Indication: PNEUMONIA STREPTOCOCCAL
     Dosage: UNK

REACTIONS (2)
  - Toxic shock syndrome streptococcal [Fatal]
  - Drug ineffective [Fatal]
